FAERS Safety Report 5265156-X (Version None)
Quarter: 2007Q1

REPORT INFORMATION
  Report Type: 
  Country: None (occurrence: None)
  Receive Date: 20061207
  Receipt Date: 20060131
  Transmission Date: 20070707
  Serious: Yes (Other)
  Sender: FDA-Public Use
  Company Number: 2006016127

PATIENT
  Age: 38 Year
  Sex: Female
  Weight: 54 kg

DRUGS (6)
  1. CLEOCIN PHOSPHATE [Suspect]
     Indication: BACTERAEMIA
     Dosage: 1800 MG (600 MG,3 IN 1 D),INTRAVENOUS
     Route: 042
     Dates: start: 20060122, end: 20060125
  2. CLEOCIN PHOSPHATE [Suspect]
     Indication: ENDOCARDITIS
     Dosage: 1800 MG (600 MG,3 IN 1 D),INTRAVENOUS
     Route: 042
     Dates: start: 20060122, end: 20060125
  3. BENADRYL [Concomitant]
  4. HEPARIN [Concomitant]
  5. DARVOCET [Concomitant]
  6. ATIVAN [Concomitant]

REACTIONS (6)
  - ANAEMIA [None]
  - EOSINOPHILIA [None]
  - LIVER FUNCTION TEST ABNORMAL [None]
  - NEPHRITIS INTERSTITIAL [None]
  - PYREXIA [None]
  - RASH [None]
